FAERS Safety Report 5475197-5 (Version None)
Quarter: 2007Q4

REPORT INFORMATION
  Report Type: 
  Country: None (occurrence: None)
  Receive Date: 20071002
  Receipt Date: 20070920
  Transmission Date: 20080405
  Serious: Yes (Other)
  Sender: FDA-Public Use
  Company Number: GB-PFIZER INC-2007078815

PATIENT
  Age: 53 Year
  Sex: Female

DRUGS (7)
  1. VARENICLINE TABLETS [Suspect]
     Indication: SMOKING CESSATION THERAPY
     Route: 048
     Dates: start: 20070601, end: 20070601
  2. BECLOMETHASONE DIPROPIONATE [Concomitant]
     Route: 055
  3. BENDROFLUMETHIAZIDE [Concomitant]
     Route: 048
  4. CANDESARTAN CILEXETIL [Concomitant]
     Route: 048
  5. DOXAZOSIN MESYLATE [Concomitant]
     Route: 048
  6. OTOMIZE [Concomitant]
     Dosage: TEXT:ONE DOSE FORM
  7. SALBUTAMOL [Concomitant]
     Route: 055

REACTIONS (2)
  - CHEST DISCOMFORT [None]
  - PAIN IN EXTREMITY [None]
